FAERS Safety Report 19999725 (Version 1)
Quarter: 2021Q4

REPORT INFORMATION
  Report Type: Spontaneous
  Country: US (occurrence: US)
  Receive Date: 20211027
  Receipt Date: 20211027
  Transmission Date: 20220303
  Serious: Yes (Other)
  Sender: FDA-Public Use
  Company Number: US-GLAND PHARMA LIMITED-2021US007416

PATIENT
  Age: 66 Year
  Sex: Male

DRUGS (1)
  1. METOPROLOL TARTRATE [Suspect]
     Active Substance: METOPROLOL TARTRATE
     Indication: Product used for unknown indication
     Dosage: 50 MG, BID
     Route: 065

REACTIONS (5)
  - Renal failure [Unknown]
  - Hyperkalaemia [Unknown]
  - Shock [Unknown]
  - Bradycardia [Recovered/Resolved]
  - Atrioventricular block [Unknown]
